FAERS Safety Report 6944563-0 (Version None)
Quarter: 2010Q3

REPORT INFORMATION
  Report Type: 
  Country: None (occurrence: None)
  Receive Date: 20100827
  Receipt Date: 20100817
  Transmission Date: 20110219
  Serious: Yes (Other)
  Sender: FDA-Public Use
  Company Number: US-ELI_LILLY_AND_COMPANY-US200903007418

PATIENT
  Age: 60 Year
  Sex: Female

DRUGS (10)
  1. HUMALOG [Suspect]
     Indication: DIABETES MELLITUS
     Dosage: 7 U, EACH MORNING
  2. HUMALOG [Suspect]
     Dosage: 5 U, AS NEEDED
  3. HUMALOG [Suspect]
     Dosage: 7 U, EACH MORNING
  4. HUMALOG [Suspect]
     Dosage: 5 U, AS NEEDED
  5. HUMALOG [Suspect]
  6. LANTUS [Concomitant]
     Dosage: UNK, EACH EVENING
  7. COREG [Concomitant]
  8. LYRICA [Concomitant]
  9. PRILOSEC [Concomitant]
  10. ZYRTEC [Concomitant]

REACTIONS (11)
  - BLINDNESS UNILATERAL [None]
  - BLOOD PRESSURE FLUCTUATION [None]
  - DIABETIC RETINOPATHY [None]
  - DRUG DISPENSING ERROR [None]
  - EYE HAEMORRHAGE [None]
  - EYE LASER SURGERY [None]
  - NEUROPATHY PERIPHERAL [None]
  - RENAL FAILURE CHRONIC [None]
  - VISION BLURRED [None]
  - VISUAL ACUITY REDUCED [None]
  - VISUAL IMPAIRMENT [None]
